FAERS Safety Report 12983561 (Version 3)
Quarter: 2017Q2

REPORT INFORMATION
  Report Type: Spontaneous
  Country: US (occurrence: US)
  Receive Date: 20161129
  Receipt Date: 20170412
  Transmission Date: 20170830
  Serious: No
  Sender: FDA-Public Use
  Company Number: US-CELGENEUS-USA-2016110508

PATIENT
  Age: 49 Year
  Sex: Female

DRUGS (2)
  1. DIVIGEL [Suspect]
     Active Substance: ESTRADIOL
     Indication: OESTROGEN REPLACEMENT THERAPY
     Route: 065
     Dates: start: 20160701, end: 20160901
  2. OTEZLA [Suspect]
     Active Substance: APREMILAST
     Indication: PSORIATIC ARTHROPATHY
     Dosage: 60MG
     Route: 048
     Dates: start: 20150904

REACTIONS (6)
  - Menopause [Unknown]
  - Psoriatic arthropathy [Unknown]
  - Therapeutic response decreased [Unknown]
  - Arthralgia [Unknown]
  - Pain in extremity [Unknown]
  - Psoriasis [Recovered/Resolved]

NARRATIVE: CASE EVENT DATE: 201604
